FAERS Safety Report 15127262 (Version 1)
Quarter: 2018Q3

REPORT INFORMATION
  Report Type: Spontaneous
  Country: US (occurrence: US)
  Receive Date: 20180710
  Receipt Date: 20180710
  Transmission Date: 20181010
  Serious: Yes (Other)
  Sender: FDA-Public Use
  Company Number: US-ENDO PHARMACEUTICALS INC-2018-039969

PATIENT
  Age: 61 Year
  Sex: Female

DRUGS (1)
  1. DANTRIUM [Suspect]
     Active Substance: DANTROLENE SODIUM
     Indication: PRODUCT USED FOR UNKNOWN INDICATION
     Dosage: UNK UNKNOWN, UNKNOWN
     Route: 042
     Dates: start: 20180601

REACTIONS (3)
  - Injection site extravasation [Unknown]
  - Retinal tear [Unknown]
  - Feeling hot [Unknown]

NARRATIVE: CASE EVENT DATE: 20180602
